FAERS Safety Report 7022155-5 (Version None)
Quarter: 2010Q3

REPORT INFORMATION
  Report Type: 
  Country: None (occurrence: None)
  Receive Date: 20100930
  Receipt Date: 20100917
  Transmission Date: 20110219
  Serious: Yes (Hospitalization, Other)
  Sender: FDA-Public Use
  Company Number: PHHY2010CN53781

PATIENT
  Sex: Male
  Weight: 59 kg

DRUGS (4)
  1. SEBIVO [Suspect]
     Indication: HEPATITIS B
     Dosage: 600 MG, QD
     Route: 048
     Dates: start: 20090701, end: 20100628
  2. INTERFERON [Concomitant]
     Dosage: UNK
     Dates: start: 20080401
  3. ENTECAVIR [Concomitant]
     Dosage: UNK
     Dates: start: 20100628, end: 20100719
  4. HEPSERA [Concomitant]
     Dosage: UNK
     Dates: start: 20100809

REACTIONS (20)
  - ASPARTATE AMINOTRANSFERASE INCREASED [None]
  - BALANCE DISORDER [None]
  - BLOOD BILIRUBIN INCREASED [None]
  - BLOOD CREATINE PHOSPHOKINASE INCREASED [None]
  - BLOOD CREATINE PHOSPHOKINASE MB INCREASED [None]
  - BLOOD LACTIC ACID INCREASED [None]
  - FALL [None]
  - FATIGUE [None]
  - GAIT DISTURBANCE [None]
  - HEPATITIS B DNA INCREASED [None]
  - HYPERPLASIA [None]
  - HYPOTONIA [None]
  - LACTIC ACIDOSIS [None]
  - LYMPHOCYTIC INFILTRATION [None]
  - MUSCLE ATROPHY [None]
  - MUSCLE INJURY [None]
  - MUSCULAR WEAKNESS [None]
  - MYALGIA [None]
  - NAUSEA [None]
  - VOMITING [None]
